FAERS Safety Report 7234835-7 (Version None)
Quarter: 2011Q1

REPORT INFORMATION
  Report Type: 
  Country: None (occurrence: None)
  Receive Date: 20110114
  Receipt Date: 20110114
  Transmission Date: 20110831
  Serious: Yes (Disabling)
  Sender: FDA-Public Use
  Company Number: None

PATIENT
  Age: 70 Year
  Sex: Male
  Weight: 86.1 kg

DRUGS (1)
  1. LACOSAMIDE [Suspect]

REACTIONS (2)
  - BRADYCARDIA [None]
  - ATRIAL FIBRILLATION [None]
